FAERS Safety Report 6548983-8 (Version None)
Quarter: 2010Q1

REPORT INFORMATION
  Report Type: 
  Country: None (occurrence: None)
  Receive Date: 20100125
  Receipt Date: 20100114
  Transmission Date: 20100710
  Serious: Yes (Other)
  Sender: FDA-Public Use
  Company Number: CN-JNJFOC-20091203401

PATIENT
  Age: 21 Year
  Sex: Female

DRUGS (5)
  1. TOPAMAX [Suspect]
     Indication: EPILEPSY
     Route: 048
  2. TOPAMAX [Suspect]
     Route: 048
  3. TOPAMAX [Suspect]
     Route: 048
  4. CLONAZEPAM [Concomitant]
     Indication: EPILEPSY
     Route: 065
  5. TEGRETOL [Concomitant]
     Indication: EPILEPSY
     Route: 065

REACTIONS (3)
  - ABNORMAL BEHAVIOUR [None]
  - EYE DISORDER [None]
  - INTENTIONAL DRUG MISUSE [None]
